FAERS Safety Report 8961107 (Version 1)
Quarter: 2012Q4

REPORT INFORMATION
  Report Type: 
  Country: US (occurrence: US)
  Receive Date: 20121212
  Receipt Date: 20121212
  Transmission Date: 20130627
  Serious: Yes (Other)
  Sender: FDA-Public Use
  Company Number: US-PFIZER INC-2012312474

PATIENT
  Age: 57 Year
  Sex: Female
  Weight: 90.7 kg

DRUGS (5)
  1. GABAPENTIN [Suspect]
     Indication: NEUROPATHY PERIPHERAL
     Dosage: 300 mg, 3x/day
     Route: 048
     Dates: start: 2009, end: 2011
  2. NEURONTIN [Suspect]
     Indication: NEUROPATHY PERIPHERAL
     Dosage: 300 mg, 3x/day
     Route: 048
     Dates: start: 2011
  3. OXYCODONE [Concomitant]
     Dosage: UNK
  4. POLYETHYLENE GLYCOL [Concomitant]
     Dosage: UNK
  5. LORAZEPAM [Concomitant]
     Indication: ANXIETY
     Dosage: 1 mg, UNK

REACTIONS (1)
  - Cerebrovascular accident [Recovering/Resolving]
